FAERS Safety Report 6315029-6 (Version None)
Quarter: 2009Q3

REPORT INFORMATION
  Report Type: 
  Country: None (occurrence: None)
  Receive Date: 20090818
  Receipt Date: 20090818
  Transmission Date: 20100115
  Serious: Yes (Hospitalization)
  Sender: FDA-Public Use
  Company Number: None

PATIENT
  Age: 66 Year
  Sex: Female
  Weight: 86.8 kg

DRUGS (6)
  1. FULVESTRANT ASTRAZENECA [Suspect]
     Indication: BREAST CANCER
     Dosage: 500MG EVERY 4 WEEKS IM
     Route: 030
     Dates: start: 20080214, end: 20090604
  2. ASPIRIN [Concomitant]
  3. ATIVAN [Concomitant]
  4. CRESTOR [Concomitant]
  5. HYDROCHLOROTHIAZIDE [Concomitant]
  6. OTC ANTIHISTAMINE [Concomitant]

REACTIONS (2)
  - ENDOMETRIAL CANCER [None]
  - POSTMENOPAUSAL HAEMORRHAGE [None]
